FAERS Safety Report 23287409 (Version 2)
Quarter: 2023Q4

REPORT INFORMATION
  Report Type: Spontaneous
  Country: HR (occurrence: HR)
  Receive Date: 20231212
  Receipt Date: 20231222
  Transmission Date: 20240110
  Serious: Yes (Other)
  Sender: FDA-Public Use
  Company Number: None

PATIENT
  Age: 69 Year
  Sex: Male
  Weight: 103 kg

DRUGS (2)
  1. TRIDERM [Suspect]
     Active Substance: TRIAMCINOLONE ACETONIDE
     Indication: Skin infection
     Dosage: UNK
     Route: 003
     Dates: start: 20231115
  2. AMOXICILLIN\CLAVULANATE POTASSIUM [Concomitant]
     Active Substance: AMOXICILLIN\CLAVULANATE POTASSIUM
     Dosage: UNK
     Route: 048

REACTIONS (3)
  - Balance disorder [Unknown]
  - Vertigo [Unknown]
  - Tinnitus [Unknown]

NARRATIVE: CASE EVENT DATE: 20231118
